FAERS Safety Report 9604591 (Version 1)
Quarter: 2013Q4

REPORT INFORMATION
  Report Type: Spontaneous
  Country: ES (occurrence: ES)
  Receive Date: 20131008
  Receipt Date: 20131008
  Transmission Date: 20140711
  Serious: Yes (Other)
  Sender: FDA-Public Use
  Company Number: ES-RANBAXY-2013RR-73815

PATIENT
  Age: 55 Year
  Sex: Female

DRUGS (13)
  1. TIZANIDINE [Suspect]
     Indication: MUSCLE SPASTICITY
     Dosage: 4 MG, TID
     Route: 065
     Dates: start: 2009
  2. CIPROFLOXACIN [Interacting]
     Indication: URINARY TRACT INFECTION
     Dosage: 500 MG, BID
     Route: 065
     Dates: start: 201011
  3. ACENOCUMAROL [Concomitant]
     Indication: FACTOR V DEFICIENCY
     Dosage: UNK
     Route: 065
  4. ACENOCUMAROL [Concomitant]
     Indication: DEEP VEIN THROMBOSIS
  5. ACENOCUMAROL [Concomitant]
     Indication: PULMONARY EMBOLISM
  6. LEVOTHYROXINE [Concomitant]
     Indication: HYPOTHYROIDISM
     Dosage: 50-75 UG/DAY
     Route: 065
     Dates: start: 2005
  7. ENALAPRIL [Concomitant]
     Indication: HYPERTENSION
     Dosage: 20 MG/DAY
     Route: 065
     Dates: start: 2005
  8. ALENDRONATE [Concomitant]
     Indication: OSTEOPOROSIS
     Dosage: 70 MG, 1/WEEK
     Route: 065
     Dates: start: 2005
  9. CALCIUM CARBONATE [Concomitant]
     Indication: OSTEOPOROSIS
     Dosage: 2.5 G/DAY
     Route: 065
     Dates: start: 2005
  10. CHOLECALCIFEROL [Concomitant]
     Indication: OSTEOPOROSIS
     Dosage: 880 IU/DAY
     Route: 065
     Dates: start: 2005
  11. CITALOPRAM [Concomitant]
     Indication: PRODUCT USED FOR UNKNOWN INDICATION
     Dosage: 20 MG/DAY
     Route: 065
  12. BACLOFEN [Concomitant]
     Indication: MUSCLE SPASTICITY
     Dosage: 25 MG, TID
     Route: 065
     Dates: start: 2009
  13. GABAPENTIN [Concomitant]
     Indication: NEURALGIA
     Dosage: 300 MG, TID
     Route: 065
     Dates: start: 2009

REACTIONS (3)
  - Hallucinations, mixed [Unknown]
  - Drug interaction [Unknown]
  - Labelled drug-drug interaction medication error [Unknown]
